FAERS Safety Report 4776024-1 (Version None)
Quarter: 2005Q3

REPORT INFORMATION
  Report Type: 
  Country: None (occurrence: None)
  Receive Date: 20050922
  Receipt Date: 20050914
  Transmission Date: 20060218
  Serious: Yes (Hospitalization)
  Sender: FDA-Public Use
  Company Number: PT-ROCHE-417881

PATIENT
  Age: 75 Year
  Sex: Male
  Weight: 71 kg

DRUGS (5)
  1. TORADOL [Suspect]
     Route: 042
     Dates: start: 20050818, end: 20050820
  2. CEFRADINE [Concomitant]
     Route: 042
     Dates: start: 20050818, end: 20050820
  3. DALTEPARIN SODIUM [Concomitant]
     Route: 058
     Dates: start: 20050818, end: 20050820
  4. PARACETAMOL [Concomitant]
     Dates: start: 20050818, end: 20050820
  5. MORPHINE [Concomitant]

REACTIONS (4)
  - HAEMOLYSIS [None]
  - HYPERTENSION [None]
  - PYREXIA [None]
  - TRANSIENT ISCHAEMIC ATTACK [None]
